FAERS Safety Report 6685870-9 (Version None)
Quarter: 2010Q2

REPORT INFORMATION
  Report Type: 
  Country: None (occurrence: None)
  Receive Date: 20100419
  Receipt Date: 20100414
  Transmission Date: 20101027
  Serious: Yes (Hospitalization)
  Sender: FDA-Public Use
  Company Number: US-JNJFOC-20100301585

PATIENT
  Sex: Male
  Weight: 92.99 kg

DRUGS (2)
  1. LEVAQUIN [Suspect]
     Indication: DRUG USE FOR UNKNOWN INDICATION
     Route: 048
  2. UNKNOWN MEDICATION [Concomitant]
     Route: 065

REACTIONS (8)
  - CHEILITIS [None]
  - PAIN [None]
  - PRURITUS [None]
  - RASH [None]
  - STOMATITIS [None]
  - SWOLLEN TONGUE [None]
  - TONGUE ULCERATION [None]
  - WEIGHT DECREASED [None]
